FAERS Safety Report 22400230 (Version 1)
Quarter: 2023Q2

REPORT INFORMATION
  Report Type: Spontaneous
  Country: US (occurrence: None)
  Receive Date: 20230601
  Receipt Date: 20230601
  Transmission Date: 20230722
  Serious: No
  Sender: FDA-Public Use
  Company Number: None

PATIENT
  Age: 26 Year
  Sex: Female
  Weight: 60.75 kg

DRUGS (1)
  1. ORACEA [Suspect]
     Active Substance: DOXYCYCLINE
     Indication: Rosacea
     Route: 048
     Dates: start: 20230115, end: 20230523

REACTIONS (4)
  - Headache [None]
  - Dizziness [None]
  - Nausea [None]
  - Angular cheilitis [None]

NARRATIVE: CASE EVENT DATE: 20230601
